FAERS Safety Report 9967445 (Version 1)
Quarter: 2014Q1

REPORT INFORMATION
  Report Type: Report from Study
  Country: US (occurrence: US)
  Receive Date: 20140305
  Receipt Date: 20140305
  Transmission Date: 20141002
  Serious: No
  Sender: FDA-Public Use
  Company Number: US-ABBVIE-13P-163-1137814-00

PATIENT
  Age: 54 Year
  Sex: Female
  Weight: 56.75 kg

DRUGS (5)
  1. HUMIRA [Suspect]
     Indication: PSORIASIS
     Route: 058
     Dates: start: 2006, end: 2007
  2. HUMIRA [Suspect]
     Route: 058
     Dates: start: 201306
  3. NEXIUM [Concomitant]
     Indication: GASTROOESOPHAGEAL REFLUX DISEASE
  4. PEPCID [Concomitant]
     Indication: GASTROOESOPHAGEAL REFLUX DISEASE
  5. FIORICET [Concomitant]
     Indication: MIGRAINE
     Dosage: PRN

REACTIONS (1)
  - Psoriasis [Recovering/Resolving]
